FAERS Safety Report 4762505-3 (Version None)
Quarter: 2005Q3

REPORT INFORMATION
  Report Type: 
  Country: None (occurrence: None)
  Receive Date: 20050902
  Receipt Date: 20050330
  Transmission Date: 20060218
  Serious: Yes (Other)
  Sender: FDA-Public Use
  Company Number: 2005S1001747

PATIENT
  Age: 57 Year
  Sex: Male
  Weight: 104.3273 kg

DRUGS (16)
  1. FENTANYL [Suspect]
     Indication: MULTIPLE SCLEROSIS
     Dosage: 50 MCG/HR;QOD;TDER; 100 MCG/HR;QOD;TDER; 50 MCG/HR;QOD;TDER
     Route: 062
     Dates: start: 20050328, end: 20050330
  2. FENTANYL [Suspect]
     Indication: NEUROPATHY
     Dosage: 50 MCG/HR;QOD;TDER; 100 MCG/HR;QOD;TDER; 50 MCG/HR;QOD;TDER
     Route: 062
     Dates: start: 20050328, end: 20050330
  3. FENTANYL [Suspect]
     Indication: PERIPHERAL VASCULAR DISORDER
     Dosage: 50 MCG/HR;QOD;TDER; 100 MCG/HR;QOD;TDER; 50 MCG/HR;QOD;TDER
     Route: 062
     Dates: start: 20050328, end: 20050330
  4. FENTANYL [Suspect]
     Indication: MULTIPLE SCLEROSIS
     Dosage: 50 MCG/HR;QOD;TDER; 100 MCG/HR;QOD;TDER; 50 MCG/HR;QOD;TDER
     Route: 062
     Dates: start: 20050309
  5. FENTANYL [Suspect]
     Indication: NEUROPATHY
     Dosage: 50 MCG/HR;QOD;TDER; 100 MCG/HR;QOD;TDER; 50 MCG/HR;QOD;TDER
     Route: 062
     Dates: start: 20050309
  6. FENTANYL [Suspect]
     Indication: PERIPHERAL VASCULAR DISORDER
     Dosage: 50 MCG/HR;QOD;TDER; 100 MCG/HR;QOD;TDER; 50 MCG/HR;QOD;TDER
     Route: 062
     Dates: start: 20050309
  7. FENTANYL [Suspect]
     Indication: MULTIPLE SCLEROSIS
     Dosage: 50 MCG/HR;QOD;TDER; 100 MCG/HR;QOD;TDER; 50 MCG/HR;QOD;TDER
     Route: 062
     Dates: start: 20050330
  8. FENTANYL [Suspect]
     Indication: NEUROPATHY
     Dosage: 50 MCG/HR;QOD;TDER; 100 MCG/HR;QOD;TDER; 50 MCG/HR;QOD;TDER
     Route: 062
     Dates: start: 20050330
  9. FENTANYL [Suspect]
     Indication: PERIPHERAL VASCULAR DISORDER
     Dosage: 50 MCG/HR;QOD;TDER; 100 MCG/HR;QOD;TDER; 50 MCG/HR;QOD;TDER
     Route: 062
     Dates: start: 20050330
  10. PARACETAMOL/OXYCODONE HYDROCHLORIDE [Concomitant]
  11. HYDRALAZINE [Concomitant]
  12. CARVEDILOL [Concomitant]
  13. ATORVASTATIN [Concomitant]
  14. LANSOPRAZOLE [Concomitant]
  15. INSULIN [Concomitant]
  16. HYDROCHLOROTHIAZIDE/LISINOPRIL [Concomitant]

REACTIONS (1)
  - DRUG INEFFECTIVE [None]
